FAERS Safety Report 9950434 (Version 1)
Quarter: 2014Q1

REPORT INFORMATION
  Report Type: Report from Study
  Country: US (occurrence: US)
  Receive Date: 20140304
  Receipt Date: 20140304
  Transmission Date: 20141002
  Serious: No
  Sender: FDA-Public Use
  Company Number: US-ABBVIE-13P-163-1065014-00

PATIENT
  Sex: Female

DRUGS (13)
  1. HUMIRA [Suspect]
     Indication: CROHN^S DISEASE
     Route: 058
     Dates: start: 201301
  2. SULFASALAZINE [Concomitant]
     Indication: ARTHRALGIA
  3. SULFASALAZINE [Concomitant]
     Indication: ARTHRALGIA
  4. ESTRADIOL [Concomitant]
     Indication: PRODUCT USED FOR UNKNOWN INDICATION
  5. FOLIC ACID [Concomitant]
     Indication: VITAMIN SUPPLEMENTATION
  6. TEMAZEPAM [Concomitant]
     Indication: PRODUCT USED FOR UNKNOWN INDICATION
  7. MORPHINE [Concomitant]
     Indication: PRODUCT USED FOR UNKNOWN INDICATION
  8. ESTRACE [Concomitant]
     Indication: HORMONE REPLACEMENT THERAPY
  9. ZYTREC [Concomitant]
     Indication: ALLERGY TO ANIMAL
  10. ZYTREC [Concomitant]
     Indication: HOUSE DUST ALLERGY
  11. MULTIVITAMIN [Concomitant]
     Indication: VITAMIN SUPPLEMENTATION
  12. CALCIUM WITH VITAMIN D3 [Concomitant]
     Indication: MINERAL SUPPLEMENTATION
  13. FISH OIL [Concomitant]
     Dosage: SPORADICALLY

REACTIONS (1)
  - Eczema [Recovering/Resolving]
